FAERS Safety Report 7474955-5 (Version None)
Quarter: 2011Q1

REPORT INFORMATION
  Report Type: 
  Country: None (occurrence: None)
  Receive Date: 20110302
  Receipt Date: 20101111
  Transmission Date: 20110831
  Serious: Yes (Death, Hospitalization)
  Sender: FDA-Public Use
  Company Number: 163-21880-10091888

PATIENT
  Age: 68 Year
  Sex: Female

DRUGS (10)
  1. AVALIDE [Concomitant]
  2. PREDNISONE [Concomitant]
  3. MULTIVITAMIN [Concomitant]
  4. CALCIUM (CALCIUM) [Concomitant]
  5. ORAL B12 [Concomitant]
  6. AMLODIPINE [Concomitant]
  7. ASPIRIN [Concomitant]
  8. AMLODIPINE [Concomitant]
  9. REVLIMID [Suspect]
     Indication: 5Q MINUS SYNDROME
     Dosage: 10 MG, 1 IN 1 D, PO; 10 MG, 1 IN 1 D, PO
     Route: 048
     Dates: start: 20090901, end: 20100719
  10. REVLIMID [Suspect]
     Indication: 5Q MINUS SYNDROME
     Dosage: 10 MG, 1 IN 1 D, PO; 10 MG, 1 IN 1 D, PO
     Route: 048
     Dates: start: 20080206, end: 20080211

REACTIONS (2)
  - MYELODYSPLASTIC SYNDROME TRANSFORMATION [None]
  - ACUTE MYELOID LEUKAEMIA [None]
